FAERS Safety Report 16424078 (Version 2)
Quarter: 2019Q2

REPORT INFORMATION
  Report Type: Report from Study
  Country: US (occurrence: US)
  Receive Date: 20190613
  Receipt Date: 20190618
  Transmission Date: 20190711
  Serious: Yes (Other)
  Sender: FDA-Public Use
  Company Number: US-AMGEN-USASP2019091755

PATIENT
  Age: 66 Year
  Sex: Female

DRUGS (19)
  1. VERAPAMIL [Concomitant]
     Active Substance: VERAPAMIL HYDROCHLORIDE
     Dosage: 40 MILLIGRAM, HALF A TAB IN THE MORNING AND HALF AT NIGHT
  2. CALCIUM PLUS VITAMIN D [Concomitant]
     Active Substance: CALCIUM\VITAMIN D
     Dosage: UNK UNK, TWO EVERY MORNING
  3. MUCINEX [Concomitant]
     Active Substance: GUAIFENESIN
     Dosage: 1200 MILLIGRAM, TWO IN THE MORNING AND ONE AT NIGHT
  4. AMOXICILLIN. [Concomitant]
     Active Substance: AMOXICILLIN
     Indication: ARTHROPATHY
     Dosage: UNK
  5. PLAQUENIL [Concomitant]
     Active Substance: HYDROXYCHLOROQUINE SULFATE
     Dosage: 200 MILLIGRAM, BID
  6. VITAMIN E [Concomitant]
     Active Substance: .ALPHA.-TOCOPHEROL
     Dosage: 200 INTERNATIONAL UNIT, QD
  7. ENBREL [Suspect]
     Active Substance: ETANERCEPT
     Indication: RHEUMATOID ARTHRITIS
     Dosage: 50 MILLIGRAM
     Route: 065
     Dates: start: 20190325, end: 2019
  8. ENBREL [Suspect]
     Active Substance: ETANERCEPT
     Dosage: 50 MILLIGRAM, QWK
     Route: 065
     Dates: start: 2019
  9. CYMBALTA [Concomitant]
     Active Substance: DULOXETINE HYDROCHLORIDE
     Dosage: 20 MILLIGRAM, QD
  10. RESTASIS [Concomitant]
     Active Substance: CYCLOSPORINE
     Dosage: UNK UNK, BID
  11. LEVOCETIRIZINE [Concomitant]
     Active Substance: LEVOCETIRIZINE
     Dosage: 5 MILLIGRAM, QD
  12. VOLTAREN [DICLOFENAC] [Concomitant]
     Active Substance: DICLOFENAC SODIUM
     Dosage: UNK, 1.5 AS NEEDED
  13. ALEVE [Concomitant]
     Active Substance: NAPROXEN SODIUM
     Dosage: UNK, AS NEEDED
  14. LEVOTHYROXINE. [Concomitant]
     Active Substance: LEVOTHYROXINE
     Dosage: 100 MICROGRAM, QD
  15. OXYBUTYNIN. [Concomitant]
     Active Substance: OXYBUTYNIN CHLORIDE
     Dosage: 5 MILLIGRAM, ONE IN THE MORNING AND ONE AT NIGHT
  16. PRAVASTATIN. [Concomitant]
     Active Substance: PRAVASTATIN
     Dosage: 20 MILLIGRAM, QD
  17. FLUTICASONE. [Concomitant]
     Active Substance: FLUTICASONE
     Dosage: 50 MICROGRAM, BID
  18. VITAMIN D3 [Concomitant]
     Active Substance: CHOLECALCIFEROL
     Dosage: 2000 INTERNATIONAL UNIT, QD
  19. ASPIRIN 81 [Concomitant]
     Active Substance: ASPIRIN
     Dosage: UNK UNK, QD

REACTIONS (3)
  - Wrong technique in product usage process [Unknown]
  - Helicobacter infection [Recovered/Resolved]
  - Injection site pain [Unknown]

NARRATIVE: CASE EVENT DATE: 201903
